FAERS Safety Report 5382481-2 (Version None)
Quarter: 2007Q3

REPORT INFORMATION
  Report Type: 
  Country: None (occurrence: None)
  Receive Date: 20070710
  Receipt Date: 20070629
  Transmission Date: 20080115
  Serious: Yes (Hospitalization)
  Sender: FDA-Public Use
  Company Number: HQWYE861929JUN07

PATIENT
  Sex: Female

DRUGS (4)
  1. RAPAMUNE [Suspect]
     Indication: PROPHYLAXIS AGAINST TRANSPLANT REJECTION
     Route: 048
     Dates: start: 20061115, end: 20070301
  2. RAPAMUNE [Suspect]
     Route: 048
     Dates: start: 20070301
  3. PROGRAF [Concomitant]
     Indication: PROPHYLAXIS AGAINST TRANSPLANT REJECTION
     Dosage: UNSPECIFIED
  4. PROGRAF [Concomitant]
     Dosage: 1 MG TOTAL DAILY DOSE
     Dates: start: 20070301

REACTIONS (1)
  - LIVER TRANSPLANT REJECTION [None]
